FAERS Safety Report 14288757 (Version 8)
Quarter: 2021Q1

REPORT INFORMATION
  Report Type: Report from Study
  Country: None (occurrence: FI)
  Receive Date: 20171215
  Receipt Date: 20210209
  Transmission Date: 20210419
  Serious: Yes (Hospitalization, Other)
  Sender: FDA-Public Use
  Company Number: FI-ABBVIE-17K-055-2193801-00

PATIENT
  Age: 76 Year
  Sex: Female

DRUGS (5)
  1. VITAMIN B [Concomitant]
     Active Substance: VITAMIN B
     Indication: PRODUCT USED FOR UNKNOWN INDICATION
  2. DUODOPA [Suspect]
     Active Substance: CARBIDOPA\LEVODOPA
     Indication: PARKINSON^S DISEASE
     Route: 050
     Dates: start: 20171128, end: 20171205
  3. DUODOPA [Suspect]
     Active Substance: CARBIDOPA\LEVODOPA
     Route: 050
     Dates: start: 20171205
  4. OXAZEPAM. [Concomitant]
     Active Substance: OXAZEPAM
     Indication: SLEEP DISORDER
  5. DUODOPA [Suspect]
     Active Substance: CARBIDOPA\LEVODOPA
     Dosage: 16H TREATMENT
     Route: 050
     Dates: start: 20180201

REACTIONS (20)
  - Complication of device insertion [Unknown]
  - Stoma site inflammation [Recovered/Resolved]
  - Wrong technique in device usage process [Unknown]
  - Device issue [Not Recovered/Not Resolved]
  - Liver abscess [Not Recovered/Not Resolved]
  - Injury associated with device [Recovered/Resolved]
  - Complication of device insertion [Recovered/Resolved]
  - Fall [Recovered/Resolved]
  - Device colour issue [Unknown]
  - Hepatobiliary procedural complication [Not Recovered/Not Resolved]
  - Stoma site inflammation [Unknown]
  - Device physical property issue [Unknown]
  - Abdominal abscess [Unknown]
  - Device leakage [Unknown]
  - Hepatic rupture [Recovered/Resolved]
  - Stoma site inflammation [Recovered/Resolved]
  - Abdominal pain [Unknown]
  - Device material issue [Unknown]
  - Device issue [Unknown]
  - Device placement issue [Unknown]

NARRATIVE: CASE EVENT DATE: 2017
